FAERS Safety Report 5308246-5 (Version None)
Quarter: 2007Q1

REPORT INFORMATION
  Report Type: 
  Country: None (occurrence: None)
  Receive Date: 20070201
  Receipt Date: 20060921
  Transmission Date: 20070707
  Serious: Yes (Other)
  Sender: FDA-Public Use
  Company Number: US-2006-008237

PATIENT
  Age: 44 Year
  Sex: Female

DRUGS (6)
  1. MIRENA [Suspect]
     Indication: CONTRACEPTION
     Dosage: 20 UG/DAY, CONT, INTRA-UTERINE
     Route: 015
     Dates: start: 20021220
  2. MIRENA [Suspect]
     Indication: CONTRACEPTION
     Dosage: 20 UG/DAY, CONT, INTRA-UTERINE
     Route: 015
     Dates: start: 20060314
  3. DEPO-PROVERA [Concomitant]
  4. ALTACE [Concomitant]
  5. ZOCOR [Concomitant]
  6. METFORMIN HCL [Concomitant]

REACTIONS (2)
  - IUD MIGRATION [None]
  - MEDICATION ERROR [None]
